FAERS Safety Report 19780127 (Version 1)
Quarter: 2021Q3

REPORT INFORMATION
  Report Type: Spontaneous
  Country: CN (occurrence: CN)
  Receive Date: 20210902
  Receipt Date: 20210902
  Transmission Date: 20211014
  Serious: Yes (Hospitalization)
  Sender: FDA-Public Use
  Company Number: CN-PFIZER INC-202101083953

PATIENT
  Age: 83 Year
  Sex: Male

DRUGS (2)
  1. AVIBACTAM SODIUM\CEFTAZIDIME [Concomitant]
     Active Substance: AVIBACTAM SODIUM\CEFTAZIDIME
     Indication: ANTI-INFECTIVE THERAPY
     Dosage: 0.94 G, 2X/DAY
     Route: 041
     Dates: start: 20210806, end: 20210812
  2. LINEZOLID. [Suspect]
     Active Substance: LINEZOLID
     Indication: ANTI-INFECTIVE THERAPY
     Dosage: 600 MG, 2X/DAY
     Route: 050
     Dates: start: 20210806, end: 20210811

REACTIONS (2)
  - Petechiae [Recovering/Resolving]
  - Purpura [Recovering/Resolving]

NARRATIVE: CASE EVENT DATE: 20210809
